FAERS Safety Report 14405102 (Version 1)
Quarter: 2018Q1

REPORT INFORMATION
  Report Type: Spontaneous
  Country: US (occurrence: US)
  Receive Date: 20180118
  Receipt Date: 20180118
  Transmission Date: 20180509
  Serious: No
  Sender: FDA-Public Use
  Company Number: US-JNJFOC-20171111103

PATIENT
  Age: 63 Year
  Sex: Female
  Weight: 86.18 kg

DRUGS (1)
  1. NIZORAL [Suspect]
     Active Substance: KETOCONAZOLE
     Indication: PRURITUS
     Route: 061

REACTIONS (2)
  - Skin ulcer [Unknown]
  - Drug ineffective [Unknown]
